FAERS Safety Report 8509848-5 (Version None)
Quarter: 2012Q3

REPORT INFORMATION
  Report Type: 
  Country: None (occurrence: None)
  Receive Date: 20120713
  Receipt Date: 20120702
  Transmission Date: 20120928
  Serious: Yes (Other)
  Sender: FDA-Public Use
  Company Number: FR-PFIZER INC-2012157620

PATIENT
  Age: 44 Year
  Sex: Female

DRUGS (3)
  1. CERUBIDINE [Suspect]
     Indication: ACUTE LEUKAEMIA
     Dosage: 104.4 MG, 1X/DAY
     Route: 042
     Dates: start: 20080722, end: 20080724
  2. MYLOTARG [Suspect]
     Indication: ACUTE LEUKAEMIA
     Dosage: 10.4 MG, 1X/DAY
     Route: 042
     Dates: start: 20080725, end: 20080725
  3. CYTARABINE [Suspect]
     Indication: ACUTE LEUKAEMIA
     Dosage: 348 MG, 1X/DAY
     Route: 042
     Dates: start: 20080722, end: 20080728

REACTIONS (5)
  - FEBRILE BONE MARROW APLASIA [None]
  - LUNG DISORDER [None]
  - GASTROINTESTINAL HAEMORRHAGE [None]
  - MESENTERIC PANNICULITIS [None]
  - SEPSIS [None]
